FAERS Safety Report 13251157 (Version 2)
Quarter: 2017Q1

REPORT INFORMATION
  Report Type: Spontaneous
  Country: NO (occurrence: NO)
  Receive Date: 20170220
  Receipt Date: 20170330
  Transmission Date: 20170428
  Serious: Yes (Other)
  Sender: FDA-Public Use
  Company Number: NO-ACCORD-048454

PATIENT
  Age: 66 Year
  Sex: Male

DRUGS (11)
  1. BETNOVAT [Concomitant]
     Active Substance: BETAMETHASONE
     Route: 061
  2. VERAPAMIL [Concomitant]
     Active Substance: VERAPAMIL HYDROCHLORIDE
     Route: 048
  3. PARACET [Concomitant]
     Active Substance: ACETAMINOPHEN
     Dosage: AS NECESSARY
     Route: 048
  4. ALBYL-E [Concomitant]
     Active Substance: ASPIRIN\MAGNESIUM OXIDE
     Dates: end: 201701
  5. FOLSYRE NAF [Concomitant]
     Active Substance: FOLIC ACID
     Route: 048
  6. ELOCON [Concomitant]
     Active Substance: MOMETASONE FUROATE
     Route: 061
  7. DERMOVAT [Concomitant]
     Active Substance: CLOBETASOL
     Route: 061
  8. TRAMADOL. [Concomitant]
     Active Substance: TRAMADOL
     Dosage: AS NECESSARY
     Route: 048
  9. METHOTREXATE. [Suspect]
     Active Substance: METHOTREXATE
     Indication: PSORIATIC ARTHROPATHY
     Dosage: 2.5 MG X 10 TABLETS EVERY MONDAY
     Route: 048
     Dates: start: 2007, end: 201611
  10. METOPROLOL TARTRATE. [Concomitant]
     Active Substance: METOPROLOL TARTRATE
  11. LIPITOR [Concomitant]
     Active Substance: ATORVASTATIN CALCIUM

REACTIONS (2)
  - Polyneuropathy [Recovering/Resolving]
  - Peroneal nerve palsy [Recovering/Resolving]

NARRATIVE: CASE EVENT DATE: 20160916
